FAERS Safety Report 10626676 (Version 2)
Quarter: 2014Q4

REPORT INFORMATION
  Report Type: Report from Study
  Country: CA (occurrence: CA)
  Receive Date: 20141204
  Receipt Date: 20141204
  Transmission Date: 20150529
  Serious: Yes (Hospitalization, Other)
  Sender: FDA-Public Use
  Company Number: CA-ABBVIE-12P-028-0985758-00

PATIENT
  Age: 34 Year
  Sex: Male
  Weight: 62.65 kg

DRUGS (3)
  1. HUMIRA [Suspect]
     Active Substance: ADALIMUMAB
     Route: 058
     Dates: start: 2012
  2. HUMIRA [Suspect]
     Active Substance: ADALIMUMAB
     Indication: CROHN^S DISEASE
     Route: 058
     Dates: start: 20100505, end: 2012
  3. PREDNISONE. [Concomitant]
     Active Substance: PREDNISONE
     Indication: CROHN^S DISEASE
     Dosage: 8/DAY THAN TAPERED
     Dates: start: 201003

REACTIONS (8)
  - Drug effect decreased [Unknown]
  - Vascular pseudoaneurysm [Recovered/Resolved]
  - Crohn^s disease [Recovered/Resolved]
  - Incision site hypoaesthesia [Recovered/Resolved]
  - Weight fluctuation [Not Recovered/Not Resolved]
  - Anaemia [Unknown]
  - Small intestinal stenosis [Recovered/Resolved]
  - Procedural pain [Recovered/Resolved]

NARRATIVE: CASE EVENT DATE: 201012
